FAERS Safety Report 9775937 (Version 1)
Quarter: 2013Q4

REPORT INFORMATION
  Report Type: Spontaneous
  Country: NL (occurrence: NL)
  Receive Date: 20131220
  Receipt Date: 20131220
  Transmission Date: 20140711
  Serious: Yes (Life-Threatening, Hospitalization)
  Sender: FDA-Public Use
  Company Number: NL-TEVA-451467ISR

PATIENT
  Age: 66 Year
  Sex: Male
  Weight: 71 kg

DRUGS (7)
  1. SIMVASTATINE [Suspect]
     Indication: HYPERCHOLESTEROLAEMIA
     Dosage: 20 MILLIGRAM DAILY; ONCE DAILY 1 TABLET
     Route: 048
     Dates: start: 20080114, end: 20131205
  2. METFORMINE TABLET 500MG [Suspect]
     Indication: TYPE 2 DIABETES MELLITUS
     Dosage: 1000 MILLIGRAM DAILY; TWICE DAILY 1 TABLET
     Route: 048
     Dates: start: 20080114, end: 20131205
  3. ACETYLSALICYLZUUR TABLET  80MG [Concomitant]
     Dosage: 80 MILLIGRAM DAILY; ONCE DAILY 1 TABLET
     Route: 048
     Dates: start: 20071002
  4. NIFEDIPINE TABLET MGA 30MG [Concomitant]
     Dosage: 30 MILLIGRAM DAILY; ONCE DAILY 1 TABLET
     Route: 048
     Dates: start: 2009
  5. BISOPROLOL TABLET   2,5MG [Concomitant]
     Dosage: 2.5 MILLIGRAM DAILY; ONCE DAILY 1 TABLET
     Route: 048
  6. PERINDOPRIL TABLET 4MG (ERBUMINE) [Concomitant]
     Dosage: 4 MILLIGRAM DAILY; ONCE DAILY 1 TABLET
     Route: 048
  7. PANTOPRAZOL TABLET MSR 40MG [Concomitant]
     Dosage: 40 MILLIGRAM DAILY; ONCE DAILY 1 TABLET
     Route: 048
     Dates: start: 2008

REACTIONS (1)
  - Ischaemic pancreatitis [Recovering/Resolving]
